FAERS Safety Report 5818582-1 (Version None)
Quarter: 2008Q3

REPORT INFORMATION
  Report Type: 
  Country: None (occurrence: None)
  Receive Date: 20080717
  Receipt Date: 20080708
  Transmission Date: 20090109
  Serious: Yes (Disabling, Other)
  Sender: FDA-Public Use
  Company Number: 163-21880-08011603

PATIENT
  Age: 80 Year
  Sex: Female

DRUGS (6)
  1. REVLIMID [Suspect]
     Indication: MULTIPLE MYELOMA
     Dosage: 25 MG, DAY 1 TO 21 Q 28 DAYS, ORAL
     Route: 048
     Dates: start: 20070912, end: 20080130
  2. DEXAMETHASONE TAB [Concomitant]
  3. COUMADIN [Concomitant]
  4. LASIX [Concomitant]
  5. ASPIRIN [Concomitant]
  6. ASPIRIN [Concomitant]

REACTIONS (5)
  - ATRIAL FIBRILLATION [None]
  - DEAFNESS [None]
  - GAIT DISTURBANCE [None]
  - NEUROPATHY PERIPHERAL [None]
  - SUPRAVENTRICULAR TACHYCARDIA [None]
